FAERS Safety Report 21810559 (Version 2)
Quarter: 2023Q1

REPORT INFORMATION
  Report Type: Spontaneous
  Country: TR (occurrence: TR)
  Receive Date: 20230103
  Receipt Date: 20230315
  Transmission Date: 20230418
  Serious: Yes (Other)
  Sender: FDA-Public Use
  Company Number: TR-002147023-NVSC2022TR301720

PATIENT
  Age: 8 Year
  Sex: Female
  Weight: 27.8 kg

DRUGS (1)
  1. FILGRASTIM [Suspect]
     Active Substance: FILGRASTIM
     Indication: Graft complication
     Dosage: UNK (STRENGTH UNIT: 30 MU)
     Route: 042
     Dates: start: 20221207, end: 20221226

REACTIONS (1)
  - Delayed engraftment [Recovered/Resolved]

NARRATIVE: CASE EVENT DATE: 20221223
